FAERS Safety Report 15110634 (Version 1)
Quarter: 2018Q2

REPORT INFORMATION
  Report Type: Spontaneous
  Country: US (occurrence: US)
  Receive Date: 20180612
  Receipt Date: 20180612
  Transmission Date: 20180711
  Serious: Yes (Death)
  Sender: FDA-Public Use
  Company Number: None

PATIENT
  Sex: Female

DRUGS (10)
  1. CODIENE SULF [Concomitant]
  2. ALECENSA [Suspect]
     Active Substance: ALECTINIB HYDROCHLORIDE
     Indication: LUNG NEOPLASM MALIGNANT
     Route: 048
     Dates: start: 20180205
  3. LISINOPRIL. [Concomitant]
     Active Substance: LISINOPRIL
  4. HYFROCO/APAP [Concomitant]
  5. LEVETIRACETA [Concomitant]
  6. DEXAMTHASON [Concomitant]
  7. ALECENSA [Suspect]
     Active Substance: ALECTINIB HYDROCHLORIDE
     Indication: BRONCHIAL CARCINOMA
     Route: 048
     Dates: start: 20180205
  8. DOK [Concomitant]
     Active Substance: DOCUSATE SODIUM
  9. SUCRALFATE. [Concomitant]
     Active Substance: SUCRALFATE
  10. GLIMEPIRIDE. [Concomitant]
     Active Substance: GLIMEPIRIDE

REACTIONS (1)
  - Death [None]
